FAERS Safety Report 10221249 (Version 1)
Quarter: 2014Q2

REPORT INFORMATION
  Report Type: Spontaneous
  Country: PL (occurrence: PL)
  Receive Date: 20140606
  Receipt Date: 20140606
  Transmission Date: 20141212
  Serious: Yes (Hospitalization)
  Sender: FDA-Public Use
  Company Number: PL-SA-2014SA070503

PATIENT
  Age: 61 Year
  Sex: Female

DRUGS (1)
  1. CLEXANE [Suspect]
     Indication: ACUTE CORONARY SYNDROME
     Dosage: 80 MG/0.8 ML
     Route: 058

REACTIONS (2)
  - Pyoderma gangrenosum [Recovering/Resolving]
  - Skin ulcer [Recovering/Resolving]
